FAERS Safety Report 20957676 (Version 2)
Quarter: 2022Q2

REPORT INFORMATION
  Report Type: Spontaneous
  Country: RU (occurrence: RU)
  Receive Date: 20220614
  Receipt Date: 20220614
  Transmission Date: 20220721
  Serious: Yes (Hospitalization, Other)
  Sender: FDA-Public Use
  Company Number: RU-PFIZER INC-202200806565

PATIENT
  Sex: Female

DRUGS (5)
  1. METHYLPREDNISOLONE [Suspect]
     Active Substance: METHYLPREDNISOLONE
     Indication: Mesangioproliferative glomerulonephritis
     Dosage: UNK
     Dates: start: 201104, end: 20170824
  2. TACROLIMUS [Suspect]
     Active Substance: TACROLIMUS
     Indication: Mesangioproliferative glomerulonephritis
     Dosage: 2 MG, DAILY
     Dates: start: 201104, end: 20170824
  3. MYCOPHENOLATE MOFETIL [Suspect]
     Active Substance: MYCOPHENOLATE MOFETIL
     Indication: Mesangioproliferative glomerulonephritis
     Dosage: UNK
     Dates: start: 201104, end: 2016
  4. AZATHIOPRINE [Suspect]
     Active Substance: AZATHIOPRINE
     Indication: Mesangioproliferative glomerulonephritis
     Dosage: UNK
  5. PREDNISOLONE [Suspect]
     Active Substance: PREDNISOLONE
     Indication: Mesangioproliferative glomerulonephritis
     Dosage: 5 MG, DAILY
     Dates: start: 201804

REACTIONS (2)
  - Lymphoproliferative disorder [Recovered/Resolved]
  - Diffuse large B-cell lymphoma [Unknown]
